FAERS Safety Report 21771780 (Version 3)
Quarter: 2023Q1

REPORT INFORMATION
  Report Type: Report from Study
  Country: US (occurrence: US)
  Receive Date: 20221223
  Receipt Date: 20230127
  Transmission Date: 20230418
  Serious: No
  Sender: FDA-Public Use
  Company Number: US-002147023-NVSC2022US296374

PATIENT
  Sex: Female

DRUGS (1)
  1. COSENTYX [Suspect]
     Active Substance: SECUKINUMAB
     Indication: Psoriatic arthropathy
     Dosage: 300 MG
     Route: 065

REACTIONS (5)
  - Irritable bowel syndrome [Unknown]
  - Abdominal discomfort [Unknown]
  - Swelling [Recovering/Resolving]
  - Pain [Recovering/Resolving]
  - Product dose omission issue [Unknown]
